FAERS Safety Report 4569379-4 (Version None)
Quarter: 2005Q1

REPORT INFORMATION
  Report Type: 
  Country: None (occurrence: None)
  Receive Date: 20050201
  Receipt Date: 20050117
  Transmission Date: 20050727
  Serious: Yes (Other)
  Sender: FDA-Public Use
  Company Number: 2005014171

PATIENT
  Age: 64 Year
  Sex: Female
  Weight: 80.7403 kg

DRUGS (5)
  1. CELEBREX [Suspect]
     Indication: OSTEOARTHRITIS
     Dosage: 200 MG (200 MG, 1 IN 1 D) ORAL
     Route: 048
     Dates: start: 20000101
  2. NATEGLINIDE [Concomitant]
  3. CALCIUM GLUCONATE [Concomitant]
  4. ESOMEPRAZOLE [Concomitant]
  5. MULTIVITAMIN [Concomitant]

REACTIONS (6)
  - ARTHRALGIA [None]
  - BODY HEIGHT DECREASED [None]
  - DIFFICULTY IN WALKING [None]
  - DRUG EFFECT DECREASED [None]
  - GASTRIC DISORDER [None]
  - GASTROINTESTINAL INFECTION [None]
